FAERS Safety Report 21098751 (Version 1)
Quarter: 2022Q3

REPORT INFORMATION
  Report Type: Spontaneous
  Country: NZ (occurrence: NZ)
  Receive Date: 20220719
  Receipt Date: 20220719
  Transmission Date: 20221027
  Serious: Yes (Life-Threatening, Hospitalization)
  Sender: FDA-Public Use
  Company Number: NZ-MYLANLABS-2022M1078487

PATIENT
  Age: 42 Year
  Sex: Male

DRUGS (4)
  1. EPINEPHRINE [Suspect]
     Active Substance: EPINEPHRINE
     Indication: Anaphylactic reaction
     Dosage: 0.5 MILLIGRAM
     Route: 030
  2. ALBUTEROL [Concomitant]
     Active Substance: ALBUTEROL
     Indication: Anaphylactic reaction
     Dosage: 5 MILLIGRAM, NEBULISED
     Route: 055
  3. LORATADINE [Concomitant]
     Active Substance: LORATADINE
     Indication: Anaphylactic reaction
     Dosage: 10 MILLIGRAM
     Route: 048
  4. HYDROCORTISONE [Concomitant]
     Active Substance: HYDROCORTISONE
     Indication: Anaphylactic reaction
     Dosage: 100 MILLIGRAM
     Route: 042

REACTIONS (2)
  - Stress cardiomyopathy [Unknown]
  - Kounis syndrome [Unknown]
